FAERS Safety Report 8760821 (Version 2)
Quarter: 2012Q4

REPORT INFORMATION
  Report Type: 
  Country: BR (occurrence: BR)
  Receive Date: 20120830
  Receipt Date: 20120910
  Transmission Date: 20130627
  Serious: Yes (Other)
  Sender: FDA-Public Use
  Company Number: BR-SANOFI-AVENTIS-2012SA060084

PATIENT
  Age: 31 Year
  Sex: Male
  Weight: 109 kg

DRUGS (16)
  1. LANTUS [Suspect]
     Indication: TYPE I DIABETES MELLITUS
     Route: 058
     Dates: start: 2011, end: 2012
  2. LANTUS [Suspect]
     Indication: TYPE I DIABETES MELLITUS
     Route: 058
     Dates: start: 2012
  3. LANTUS [Suspect]
     Indication: TYPE I DIABETES MELLITUS
     Route: 058
     Dates: start: 20120820, end: 20120820
  4. LANTUS [Suspect]
     Indication: TYPE I DIABETES MELLITUS
     Dosage: after dinner
     Route: 058
     Dates: start: 20120820, end: 20120820
  5. UNSPECIFIED INGREDIENT [Suspect]
     Indication: DEVICE THERAPY
  6. APIDRA [Suspect]
     Indication: TYPE I DIABETES MELLITUS
     Route: 058
     Dates: start: 2011, end: 2012
  7. APIDRA [Suspect]
     Indication: TYPE I DIABETES MELLITUS
     Dosage: wrong drug administered
     Route: 058
     Dates: start: 20120820, end: 20120820
  8. APIDRA [Suspect]
     Indication: TYPE I DIABETES MELLITUS
     Dosage: after dinner
     Route: 058
     Dates: start: 20120820, end: 20120820
  9. APIDRA [Suspect]
     Indication: TYPE I DIABETES MELLITUS
     Route: 058
     Dates: start: 2012
  10. UNSPECIFIED INGREDIENT [Suspect]
     Indication: DEVICE THERAPY
  11. ASPIRINA [Concomitant]
     Indication: BLOOD DISORDER NOS
     Dosage: strength: 100 mg
taken from:2 years ago
     Route: 048
     Dates: start: 2010
  12. OLMETEC [Concomitant]
     Indication: BLOOD PRESSURE HIGH
     Dosage: strength: 40 mg
taken from: 2 years ago
     Route: 048
     Dates: start: 2010
  13. BUDESONIDE/FORMOTEROL [Concomitant]
     Indication: ASTHMA
     Dosage: strength: 12/400 mg
taken from: 2 years ago
     Route: 048
     Dates: start: 2010
  14. EZETIMIBE\SIMVASTATIN [Concomitant]
     Indication: CHOLESTEROL
     Dosage: strength: 10/20 mg
taken from: 2 years ago
     Route: 048
     Dates: start: 2010
  15. BUDESONIDE [Concomitant]
     Indication: ASTHMA
     Dosage: strength: 40 mg
taken from: 2 years ago
     Route: 048
     Dates: start: 2010
  16. METFORMIN [Concomitant]
     Indication: TYPE I DIABETES MELLITUS
     Dosage: strength: 850 mg
taken from: 1 year ago
     Route: 048
     Dates: start: 2011

REACTIONS (6)
  - Asthma [Unknown]
  - Dyspnoea [Unknown]
  - Hypoglycaemia [Recovered/Resolved]
  - Wrong drug administered [Unknown]
  - Hyperhidrosis [Recovered/Resolved]
  - Tremor [Recovered/Resolved]
